FAERS Safety Report 20199753 (Version 1)
Quarter: 2021Q4

REPORT INFORMATION
  Report Type: Spontaneous
  Country: US (occurrence: US)
  Receive Date: 20211217
  Receipt Date: 20211217
  Transmission Date: 20220303
  Serious: No
  Sender: FDA-Public Use
  Company Number: US-NOVEN PHARMACEUTICALS, INC.-2021-NOV-US003596

PATIENT
  Sex: Female

DRUGS (2)
  1. ESTRADIOL [Suspect]
     Active Substance: ESTRADIOL
     Indication: In vitro fertilisation
     Dosage: 0.1 MG, UNKNOWN
     Route: 062
     Dates: start: 2021
  2. ESTRADIOL [Suspect]
     Active Substance: ESTRADIOL
     Indication: Off label use
     Dosage: 0.1 MG, UNKNOWN
     Route: 062
     Dates: start: 2018

REACTIONS (5)
  - Product administered at inappropriate site [Not Recovered/Not Resolved]
  - Device issue [Recovered/Resolved]
  - Product adhesion issue [Recovered/Resolved]
  - Off label use [Not Recovered/Not Resolved]
  - No adverse event [Unknown]

NARRATIVE: CASE EVENT DATE: 20180101
